FAERS Safety Report 12218020 (Version 9)
Quarter: 2017Q2

REPORT INFORMATION
  Report Type: Report from Study
  Country: US (occurrence: US)
  Receive Date: 20160329
  Receipt Date: 20170518
  Transmission Date: 20170830
  Serious: Yes (Hospitalization, Other)
  Sender: FDA-Public Use
  Company Number: US-ACTELION-A-US2015-124847

PATIENT
  Age: 87 Year
  Sex: Male
  Weight: 70.3 kg

DRUGS (5)
  1. FUROSEMIDE. [Concomitant]
     Active Substance: FUROSEMIDE
  2. REVATIO [Concomitant]
     Active Substance: SILDENAFIL CITRATE
  3. NIFEDIPINE. [Concomitant]
     Active Substance: NIFEDIPINE
  4. OPSUMIT [Suspect]
     Active Substance: MACITENTAN
     Indication: PULMONARY ARTERIAL HYPERTENSION
     Dosage: 10 MG, QD
     Route: 048
     Dates: start: 20150821
  5. METOLAZONE. [Concomitant]
     Active Substance: METOLAZONE

REACTIONS (17)
  - Pulmonary oedema [Unknown]
  - Cardiac failure congestive [Unknown]
  - Anaemia [Unknown]
  - Transfusion [Unknown]
  - Fluid retention [Unknown]
  - Ascites [Unknown]
  - Abnormal dreams [Unknown]
  - Limb discomfort [Unknown]
  - Device issue [Unknown]
  - Prostatic disorder [Unknown]
  - Productive cough [Unknown]
  - Hypotension [Unknown]
  - Gastric haemorrhage [Unknown]
  - Haemoglobin decreased [Unknown]
  - Ejection fraction abnormal [Unknown]
  - Sputum discoloured [Unknown]
  - Therapy non-responder [Unknown]

NARRATIVE: CASE EVENT DATE: 201509
